FAERS Safety Report 8928773 (Version 1)
Quarter: 2012Q4

REPORT INFORMATION
  Report Type: Spontaneous
  Country: US (occurrence: None)
  Receive Date: 20121126
  Receipt Date: 20121126
  Transmission Date: 20130627
  Serious: No
  Sender: FDA-Public Use
  Company Number: None

PATIENT
  Age: 70 Year
  Sex: Female

DRUGS (2)
  1. METHOHEXITAL [Suspect]
     Indication: ELECTROCONVULSIVE THERAPY
     Route: 042
     Dates: start: 20120425, end: 20120425
  2. METHOHEXITAL [Suspect]
     Indication: SEDATION
     Route: 042
     Dates: start: 20120425, end: 20120425

REACTIONS (2)
  - Confusional state [None]
  - Agitation [None]
